FAERS Safety Report 18289260 (Version 1)
Quarter: 2020Q3

REPORT INFORMATION
  Report Type: Spontaneous
  Country: US (occurrence: US)
  Receive Date: 20200921
  Receipt Date: 20200921
  Transmission Date: 20201103
  Serious: Yes (Hospitalization, Other)
  Sender: FDA-Public Use
  Company Number: US-PFIZER INC-2020334416

PATIENT
  Age: 2 Year
  Sex: Female

DRUGS (6)
  1. LACTULOSE. [Concomitant]
     Active Substance: LACTULOSE
     Dosage: UNK
  2. GENOTROPIN [Suspect]
     Active Substance: SOMATROPIN
     Indication: GROWTH HORMONE DEFICIENCY
     Dosage: 0.25 MG, DAILY
     Dates: start: 20200911
  3. GENOTROPIN [Suspect]
     Active Substance: SOMATROPIN
     Indication: GENE MUTATION
     Dosage: 0.25 MG, DAILY
     Dates: start: 202009, end: 202009
  4. DEXTROSE 10% [Concomitant]
     Active Substance: DEXTROSE
     Dosage: 20 ML (20CC)
     Route: 042
  5. DEXTROSE 10% [Concomitant]
     Active Substance: DEXTROSE
     Indication: BLOOD GLUCOSE DECREASED
     Dosage: 40 ML (40CC PER HOUR)
     Route: 042
     Dates: start: 202008
  6. DEXTROSE 10% [Concomitant]
     Active Substance: DEXTROSE
     Dosage: 10 ML (10CC AND TKO OF 3?5 PER HOUR)

REACTIONS (12)
  - Pruritus [Unknown]
  - Off label use [Unknown]
  - Hypothalamo-pituitary disorder [Unknown]
  - Pyrexia [Recovered/Resolved]
  - Brain malformation [Unknown]
  - Tachycardia [Unknown]
  - Genital lesion [Unknown]
  - Product use in unapproved indication [Unknown]
  - Bradycardia [Unknown]
  - Escherichia urinary tract infection [Recovered/Resolved]
  - Staphylococcal bacteraemia [Recovered/Resolved]
  - Blood glucose increased [Unknown]

NARRATIVE: CASE EVENT DATE: 202009
